FAERS Safety Report 5005260-4 (Version None)
Quarter: 2006Q2

REPORT INFORMATION
  Report Type: 
  Country: None (occurrence: None)
  Receive Date: 20060518
  Receipt Date: 20050912
  Transmission Date: 20061013
  Serious: Yes (Death, Hospitalization)
  Sender: FDA-Public Use
  Company Number: US-GLAXOSMITHKLINE-A0578756A

PATIENT
  Age: 64 Year
  Sex: Male

DRUGS (3)
  1. ESKALITH [Suspect]
     Indication: BIPOLAR DISORDER
     Dosage: 300MG UNKNOWN
     Route: 048
     Dates: start: 19811007, end: 20030801
  2. TOPROL-XL [Concomitant]
  3. NORVASC [Concomitant]

REACTIONS (37)
  - ACUTE RESPIRATORY FAILURE [None]
  - ANAEMIA [None]
  - ARTERIOVENOUS FISTULA [None]
  - BLOOD PRESSURE INADEQUATELY CONTROLLED [None]
  - BRADYCARDIA [None]
  - CARDIAC ARREST [None]
  - CARDIAC FAILURE CONGESTIVE [None]
  - CARDIAC MURMUR [None]
  - CATHETER RELATED COMPLICATION [None]
  - COAGULOPATHY [None]
  - DIABETES MELLITUS [None]
  - DISSEMINATED INTRAVASCULAR COAGULATION [None]
  - DIVERTICULUM [None]
  - DRUG LEVEL INCREASED [None]
  - DUODENAL ULCER HAEMORRHAGE [None]
  - EXSANGUINATION [None]
  - GASTRIC ULCER [None]
  - GASTROOESOPHAGEAL REFLUX DISEASE [None]
  - GENERAL PHYSICAL HEALTH DETERIORATION [None]
  - HAEMATURIA [None]
  - HAEMODIALYSIS [None]
  - HAEMOLYSIS [None]
  - HEPATIC FAILURE [None]
  - HEPATIC NECROSIS [None]
  - LETHARGY [None]
  - LEUKOCYTOSIS [None]
  - METABOLIC ACIDOSIS [None]
  - MULTI-ORGAN FAILURE [None]
  - NODAL RHYTHM [None]
  - ONYCHOMYCOSIS [None]
  - PROCEDURAL HYPOTENSION [None]
  - RECTAL HAEMORRHAGE [None]
  - RENAL FAILURE [None]
  - RENAL HYPERTENSION [None]
  - SEPSIS [None]
  - SHOCK [None]
  - TREMOR [None]
